FAERS Safety Report 9178185 (Version 1)
Quarter: 2013Q1

REPORT INFORMATION
  Report Type: Spontaneous
  Country: DE (occurrence: DE)
  Receive Date: 20130321
  Receipt Date: 20130321
  Transmission Date: 20140127
  Serious: Yes (Other)
  Sender: FDA-Public Use
  Company Number: DE-BRISTOL-MYERS SQUIBB COMPANY-17225681

PATIENT
  Age: 72 Year
  Sex: Male
  Weight: 77 kg

DRUGS (6)
  1. ONGLYZA TABS [Suspect]
     Indication: TYPE 2 DIABETES MELLITUS
     Dosage: 28JUL11-01SEP11?24OCT11-23APR12
     Route: 048
     Dates: start: 20110728, end: 20120423
  2. CEFUROXIME AXETIL [Suspect]
     Indication: CYSTITIS
  3. ACETYLSALICYLIC ACID [Concomitant]
     Dosage: 1DF=100 UNITS NOS
     Dates: start: 20110728, end: 20130221
  4. RAMIPRIL [Concomitant]
     Dates: start: 20111024, end: 20121022
  5. SIMVASTATIN [Concomitant]
     Dates: start: 20111024, end: 20130124
  6. REPAGLINIDE [Concomitant]
     Dates: start: 20110728, end: 20130124

REACTIONS (4)
  - Reiter^s syndrome [Unknown]
  - Herpes virus infection [Unknown]
  - Eczema [Recovered/Resolved]
  - Glycosylated haemoglobin increased [Unknown]
